FAERS Safety Report 18469439 (Version 2)
Quarter: 2020Q4

REPORT INFORMATION
  Report Type: Spontaneous
  Country: US (occurrence: US)
  Receive Date: 20201105
  Receipt Date: 20201221
  Transmission Date: 20210114
  Serious: No
  Sender: FDA-Public Use
  Company Number: US-TEVA-2020-US-1844421

PATIENT
  Age: 65 Year
  Sex: Female

DRUGS (3)
  1. LIDOCAINE. [Suspect]
     Active Substance: LIDOCAINE
     Indication: SPINAL PAIN
     Route: 062
     Dates: start: 202011, end: 202011
  2. LIDOCAINE CREAM [Concomitant]
     Active Substance: LIDOCAINE
     Route: 065
  3. LIDOCAINE. [Suspect]
     Active Substance: LIDOCAINE
     Indication: SCLERODERMA

REACTIONS (6)
  - Application site scab [Recovering/Resolving]
  - Application site haemorrhage [Recovering/Resolving]
  - Off label use [Unknown]
  - Application site pain [Recovering/Resolving]
  - Application site pruritus [Unknown]
  - Product use in unapproved indication [Unknown]

NARRATIVE: CASE EVENT DATE: 202011
